FAERS Safety Report 9929004 (Version 1)
Quarter: 2014Q1

REPORT INFORMATION
  Report Type: Spontaneous
  Country: US (occurrence: None)
  Receive Date: 20140225
  Receipt Date: 20140225
  Transmission Date: 20141002
  Serious: Yes (Other)
  Sender: FDA-Public Use
  Company Number: 2190181

PATIENT
  Sex: Female

DRUGS (1)
  1. CYTARABINE INJECTION (CYTARABINE) [Suspect]
     Indication: PRODUCT USED FOR UNKNOWN INDICATION
     Dosage: UNKNOWN, 2 DAY, UNKNOWN
     Dates: start: 20140205

REACTIONS (5)
  - Hypotension [None]
  - Hypoperfusion [None]
  - Urine output decreased [None]
  - Pyrexia [None]
  - Sepsis [None]
